FAERS Safety Report 10398993 (Version 1)
Quarter: 2014Q3

REPORT INFORMATION
  Report Type: Spontaneous
  Country: FR (occurrence: FR)
  Receive Date: 20140821
  Receipt Date: 20140821
  Transmission Date: 20150326
  Serious: Yes (Other)
  Sender: FDA-Public Use
  Company Number: FR-ABBVIE-14P-056-1272886-00

PATIENT
  Age: 37 Year
  Sex: Female

DRUGS (6)
  1. REYATAZ [Suspect]
     Active Substance: ATAZANAVIR SULFATE
     Indication: HIV TEST POSITIVE
     Dates: start: 20101130, end: 20140616
  2. LYSANXIA [Concomitant]
     Active Substance: PRAZEPAM
     Indication: ANXIETY
     Route: 048
     Dates: start: 2014
  3. NORVIR [Suspect]
     Active Substance: RITONAVIR
     Dates: start: 20061024, end: 20101130
  4. NORVIR [Suspect]
     Active Substance: RITONAVIR
     Indication: HIV TEST POSITIVE
     Route: 048
     Dates: start: 20101130, end: 20140616
  5. REYATAZ [Suspect]
     Active Substance: ATAZANAVIR SULFATE
     Dates: start: 20061024, end: 20101130
  6. TRUVADA [Suspect]
     Active Substance: EMTRICITABINE\TENOFOVIR DISOPROXIL FUMARATE
     Indication: HIV TEST POSITIVE
     Dosage: 200MG/245MG
     Route: 048
     Dates: start: 20101130, end: 20140616

REACTIONS (2)
  - Renal colic [Unknown]
  - Calculus ureteric [Unknown]

NARRATIVE: CASE EVENT DATE: 2014
